FAERS Safety Report 17855045 (Version 1)
Quarter: 2020Q2

REPORT INFORMATION
  Report Type: Spontaneous
  Country: GB (occurrence: GB)
  Receive Date: 20200603
  Receipt Date: 20200603
  Transmission Date: 20200714
  Serious: Yes (Disabling, Other)
  Sender: FDA-Public Use
  Company Number: GB-ACCORD-183814

PATIENT
  Age: 85 Year
  Sex: Male
  Weight: 90.71 kg

DRUGS (3)
  1. SIMVASTATIN. [Suspect]
     Active Substance: SIMVASTATIN
     Indication: PRODUCT USED FOR UNKNOWN INDICATION
     Route: 048
     Dates: start: 20050404
  2. LERCANIDIPINE [Concomitant]
     Active Substance: LERCANIDIPINE
  3. TIMOLOL. [Concomitant]
     Active Substance: TIMOLOL

REACTIONS (1)
  - Hypoaesthesia [Not Recovered/Not Resolved]
